FAERS Safety Report 15492292 (Version 1)
Quarter: 2018Q4

REPORT INFORMATION
  Report Type: Spontaneous
  Country: US (occurrence: US)
  Receive Date: 20181012
  Receipt Date: 20181012
  Transmission Date: 20190205
  Serious: No
  Sender: FDA-Public Use
  Company Number: US-ELI_LILLY_AND_COMPANY-US201810004623

PATIENT
  Age: 45 Year
  Sex: Female

DRUGS (2)
  1. VERZENIO [Suspect]
     Active Substance: ABEMACICLIB
     Dosage: 100 MG, UNKNOWN
     Route: 065
  2. VERZENIO [Suspect]
     Active Substance: ABEMACICLIB
     Indication: BREAST CANCER METASTATIC
     Dosage: 150 MG, UNKNOWN
     Route: 065

REACTIONS (1)
  - Nausea [Not Recovered/Not Resolved]
